FAERS Safety Report 19130611 (Version 3)
Quarter: 2021Q2

REPORT INFORMATION
  Report Type: Spontaneous
  Country: IT (occurrence: IT)
  Receive Date: 20210413
  Receipt Date: 20210526
  Transmission Date: 20210717
  Serious: Yes (Other)
  Sender: FDA-Public Use
  Company Number: IT-PFIZER INC-2021357676

PATIENT
  Age: 9 Day
  Sex: Female

DRUGS (1)
  1. PROSTIN [Suspect]
     Active Substance: ALPROSTADIL
     Indication: HEART DISEASE CONGENITAL
     Dosage: 6 NG, 1X/DAY
     Route: 041
     Dates: start: 20210314, end: 20210323

REACTIONS (1)
  - Haematochezia [Recovering/Resolving]

NARRATIVE: CASE EVENT DATE: 20210323
